FAERS Safety Report 8025012-0 (Version None)
Quarter: 2012Q1

REPORT INFORMATION
  Report Type: 
  Country: None (occurrence: None)
  Receive Date: 20120105
  Receipt Date: 20120104
  Transmission Date: 20120608
  Serious: Yes (Hospitalization)
  Sender: FDA-Public Use
  Company Number: US-ROCHE-1027342

PATIENT

DRUGS (2)
  1. RITUXAN [Suspect]
     Indication: RHEUMATOID ARTHRITIS
  2. RITUXAN [Suspect]
     Indication: ACQUIRED EPIDERMOLYSIS BULLOSA
     Route: 042

REACTIONS (1)
  - HOSPITALISATION [None]
